FAERS Safety Report 6588734-4 (Version None)
Quarter: 2010Q1

REPORT INFORMATION
  Report Type: 
  Country: None (occurrence: None)
  Receive Date: 20100218
  Receipt Date: 20100209
  Transmission Date: 20100710
  Serious: Yes (Disabling, Other)
  Sender: FDA-Public Use
  Company Number: PHHY2010BR07516

PATIENT
  Age: 86 Year
  Sex: Female
  Weight: 50 kg

DRUGS (11)
  1. EXELON [Suspect]
     Indication: DEMENTIA ALZHEIMER'S TYPE
     Dosage: 6 ML, BID
     Route: 048
  2. FORASEQ [Suspect]
     Indication: EMPHYSEMA
     Dosage: 12/400 MCG, 1 CAPSULE OF EACH SUBSTANCE, TWICE A DAY
  3. PRIMIDONE [Concomitant]
     Indication: TREMOR
     Dosage: UNK
     Route: 048
  4. OMEPRAZOLE [Concomitant]
     Indication: DYSPEPSIA
     Dosage: 20 MG, QD
     Route: 048
  5. RIVOTRIL [Concomitant]
     Dosage: 2 MG, QD
  6. SIMVASTATIN [Concomitant]
     Dosage: 20 MG, QD
     Route: 048
  7. MACRODANTIN [Concomitant]
     Dosage: 10 MG, QD
  8. METFORMIN HYDROCHLORIDE [Concomitant]
     Indication: DIABETES MELLITUS
     Dosage: UNK
  9. DUOVENT [Concomitant]
     Indication: BRONCHITIS
     Dosage: UNK
  10. BEROTEC [Concomitant]
     Indication: BRONCHITIS
     Dosage: UNK
  11. PAROXETINE HCL [Concomitant]
     Indication: ANXIETY
     Dosage: 30 MG, QD

REACTIONS (4)
  - ABASIA [None]
  - BEDRIDDEN [None]
  - CONVULSION [None]
  - DEMENTIA ALZHEIMER'S TYPE [None]
